FAERS Safety Report 6355962-2 (Version None)
Quarter: 2009Q3

REPORT INFORMATION
  Report Type: 
  Country: None (occurrence: None)
  Receive Date: 20090911
  Receipt Date: 20090911
  Transmission Date: 20100115
  Serious: No
  Sender: FDA-Public Use
  Company Number: None

PATIENT
  Sex: Male
  Weight: 122.4712 kg

DRUGS (1)
  1. LOVENOX [Suspect]
     Indication: SURGERY
     Dosage: 40 MG DAILY SQ
     Route: 058
     Dates: start: 20090626, end: 20090727

REACTIONS (2)
  - BLOOD VISCOSITY INCREASED [None]
  - SKIN LACERATION [None]
